FAERS Safety Report 10372086 (Version 3)
Quarter: 2017Q3

REPORT INFORMATION
  Report Type: Spontaneous
  Country: US (occurrence: US)
  Receive Date: 20140808
  Receipt Date: 20170905
  Transmission Date: 20171127
  Serious: Yes (Hospitalization, Other)
  Sender: FDA-Public Use
  Company Number: US-BAYER-2014-115386

PATIENT
  Age: 27 Year
  Sex: Female

DRUGS (8)
  1. MIRENA [Suspect]
     Active Substance: LEVONORGESTREL
     Dosage: 20 MCG/24HR, CONT
     Route: 015
     Dates: start: 20130125, end: 20130524
  2. BACTRIM [Concomitant]
     Active Substance: SULFAMETHOXAZOLE\TRIMETHOPRIM
  3. SKELAXIN [Concomitant]
     Active Substance: METAXALONE
     Indication: MUSCLE SPASMS
  4. PERCOCET [Concomitant]
     Active Substance: ACETAMINOPHEN\OXYCODONE HYDROCHLORIDE
     Indication: PAIN
  5. FLONASE [Concomitant]
     Active Substance: FLUTICASONE PROPIONATE
  6. IBUPROFEN. [Concomitant]
     Active Substance: IBUPROFEN
  7. ZITHROMAX [Concomitant]
     Active Substance: AZITHROMYCIN DIHYDRATE
  8. MIRENA [Suspect]
     Active Substance: LEVONORGESTREL
     Dosage: 20 MCG/24HR, CONT
     Route: 015
     Dates: start: 20130524, end: 20130801

REACTIONS (13)
  - Nausea [None]
  - Intracranial pressure increased [None]
  - Blindness transient [None]
  - Papilloedema [None]
  - Vision blurred [None]
  - Tinnitus [None]
  - Visual impairment [None]
  - Device dislocation [None]
  - Injury [None]
  - Headache [None]
  - Neck pain [None]
  - Musculoskeletal stiffness [None]
  - Dizziness [None]

NARRATIVE: CASE EVENT DATE: 20130524
